FAERS Safety Report 25959402 (Version 1)
Quarter: 2025Q4

REPORT INFORMATION
  Report Type: Spontaneous
  Country: CN (occurrence: CN)
  Receive Date: 20251025
  Receipt Date: 20251025
  Transmission Date: 20260117
  Serious: Yes (Other)
  Sender: ALEXION PHARMACEUTICALS
  Company Number: CN-ASTRAZENECA-202510CHN020664CN

PATIENT
  Age: 73 Year
  Sex: Female
  Weight: 50 kg

DRUGS (1)
  1. DAPAGLIFLOZIN [Suspect]
     Active Substance: DAPAGLIFLOZIN
     Indication: Hyperglycaemia
     Dosage: 10 MILLIGRAM, QD
     Dates: start: 20250927, end: 20250928

REACTIONS (3)
  - Renal impairment [Recovering/Resolving]
  - Blood ketone body present [Recovered/Resolved]
  - Urine ketone body present [Recovered/Resolved]

NARRATIVE: CASE EVENT DATE: 20250928
